FAERS Safety Report 22159660 (Version 1)
Quarter: 2023Q1

REPORT INFORMATION
  Report Type: Spontaneous
  Country: CN (occurrence: CN)
  Receive Date: 20230331
  Receipt Date: 20230331
  Transmission Date: 20230417
  Serious: Yes (Other)
  Sender: FDA-Public Use
  Company Number: CN-STRIDES ARCOLAB LIMITED-2023SP004535

PATIENT
  Age: 6 Year
  Sex: Female

DRUGS (3)
  1. ETOPOSIDE [Suspect]
     Active Substance: ETOPOSIDE
     Indication: Juvenile chronic myelomonocytic leukaemia
     Dosage: 50 MILLIGRAM/SQ. METER; 3 COURSES WITH CHEMOTHERAPY REGIMEN
     Route: 065
  2. DECITABINE [Suspect]
     Active Substance: DECITABINE
     Indication: Juvenile chronic myelomonocytic leukaemia
     Dosage: 20 MILLIGRAM/SQ. METER; FOR 5 DAYS; 3 COURSES WITH CHEMOTHERAPY REGIMEN
     Route: 065
  3. CYTARABINE [Suspect]
     Active Substance: CYTARABINE
     Indication: Juvenile chronic myelomonocytic leukaemia
     Dosage: UNK; 3 COURSES WITH CHEMOTHERAPY REGIMEN
     Route: 065

REACTIONS (4)
  - Hyperbilirubinaemia [Unknown]
  - Infection [Unknown]
  - Thrombocytopenia [Unknown]
  - Off label use [Unknown]
